FAERS Safety Report 7354750-8 (Version None)
Quarter: 2011Q1

REPORT INFORMATION
  Report Type: 
  Country: None (occurrence: None)
  Receive Date: 20110316
  Receipt Date: 20110303
  Transmission Date: 20110831
  Serious: Yes (Death, Life-Threatening, Hospitalization, Other)
  Sender: FDA-Public Use
  Company Number: US-ACTELION-A-NJ2010-40947

PATIENT

DRUGS (4)
  1. TRACLEER [Suspect]
     Indication: PULMONARY ARTERIAL HYPERTENSION
     Dosage: UNK
     Route: 048
     Dates: start: 20040524, end: 20110225
  2. CALCIUM CHANNEL BLOCKERS [Concomitant]
  3. REVATIO [Concomitant]
  4. COUMADIN [Concomitant]

REACTIONS (5)
  - RIGHT VENTRICULAR FAILURE [None]
  - CONCOMITANT DISEASE PROGRESSION [None]
  - DEATH [None]
  - RESPIRATORY FAILURE [None]
  - DYSPNOEA [None]
